FAERS Safety Report 9059032 (Version 1)
Quarter: 2013Q1

REPORT INFORMATION
  Report Type: Spontaneous
  Country: US (occurrence: US)
  Receive Date: 20130211
  Receipt Date: 20130211
  Transmission Date: 20140127
  Serious: No
  Sender: FDA-Public Use
  Company Number: US-BRISTOL-MYERS SQUIBB COMPANY-16594533

PATIENT
  Age: 59 Year
  Sex: Male

DRUGS (7)
  1. METFORMIN HCL [Suspect]
     Indication: TYPE 2 DIABETES MELLITUS
     Dosage: INITIALLY ONCE DAILY FOR 2 WEEKS,TWICE A DAY MORNING AND SUPPER?INT:9MAY12
     Route: 048
     Dates: start: 20120417
  2. DHEA [Concomitant]
  3. LYRICA [Concomitant]
  4. PROTONIX [Concomitant]
  5. FOLIC ACID [Concomitant]
  6. XANAX [Concomitant]
  7. ALBUTEROL INHALER [Concomitant]

REACTIONS (5)
  - Blood glucose increased [Unknown]
  - Nocturia [Unknown]
  - Abdominal discomfort [Recovered/Resolved]
  - Diarrhoea [Recovered/Resolved]
  - Dyspepsia [Recovered/Resolved]
